FAERS Safety Report 6692071-7 (Version None)
Quarter: 2010Q2

REPORT INFORMATION
  Report Type: 
  Country: None (occurrence: None)
  Receive Date: 20100422
  Receipt Date: 20100416
  Transmission Date: 20101027
  Serious: Yes (Hospitalization, Other)
  Sender: FDA-Public Use
  Company Number: DE-BRISTOL-MYERS SQUIBB COMPANY-15067606

PATIENT
  Sex: Female

DRUGS (1)
  1. APROVEL TABS [Suspect]
     Route: 048

REACTIONS (4)
  - DYSPNOEA [None]
  - FALL [None]
  - MYOCARDIAL INFARCTION [None]
  - TRAUMATIC LUNG INJURY [None]
